FAERS Safety Report 11819241 (Version 1)
Quarter: 2015Q4

REPORT INFORMATION
  Report Type: Spontaneous
  Country: US (occurrence: None)
  Receive Date: 20151209
  Receipt Date: 20151209
  Transmission Date: 20160305
  Serious: Yes (Hospitalization)
  Sender: FDA-Public Use
  Company Number: None

PATIENT
  Age: 52 Year
  Sex: Female
  Weight: 64.6 kg

DRUGS (1)
  1. ENOXAPARIN [Suspect]
     Active Substance: ENOXAPARIN
     Indication: PROPHYLAXIS
     Dosage: 40MG  Q12  SQ?RECENT
     Route: 058

REACTIONS (6)
  - Infection [None]
  - Gastritis [None]
  - Sepsis [None]
  - Thrombocytopenia [None]
  - Pneumonia aspiration [None]
  - Deep vein thrombosis [None]

NARRATIVE: CASE EVENT DATE: 20150127
